FAERS Safety Report 8890558 (Version 1)
Quarter: 2012Q4

REPORT INFORMATION
  Report Type: 
  Country: US (occurrence: US)
  Receive Date: 20121106
  Receipt Date: 20121106
  Transmission Date: 20130627
  Serious: No
  Sender: FDA-Public Use
  Company Number: US-B.I. PHARMACEUTICALS,INC./RIDGEFIELD-2012-BP-27035BP

PATIENT
  Sex: Female
  Weight: 64 kg

DRUGS (17)
  1. SPIRIVA [Suspect]
     Indication: CHRONIC OBSTRUCTIVE PULMONARY DISEASE
     Dosage: 18 mcg
     Route: 055
     Dates: start: 2000
  2. METOPROLOL [Concomitant]
     Indication: HYPERTENSION
     Dosage: 200 mg
     Route: 048
  3. ULTRAM [Concomitant]
     Indication: OSTEOPOROSIS
     Dosage: 50 mg
     Route: 048
  4. FLUTICASONE [Concomitant]
     Indication: NASAL DISORDER
     Dosage: 200 mcg
     Route: 045
  5. SIMVASTATIN [Concomitant]
     Indication: BLOOD CHOLESTEROL INCREASED
     Dosage: 80 mg
     Route: 048
  6. SINGULAIR [Concomitant]
     Indication: HYPERSENSITIVITY
     Dosage: 10 mg
     Route: 048
     Dates: start: 2000
  7. LISINOPRIL [Concomitant]
     Indication: HYPERTENSION
     Dosage: 10 mg
     Route: 048
  8. WARFARIN [Concomitant]
     Indication: BLOOD DISORDER
     Dosage: 5 mg
     Route: 048
  9. QVAR [Concomitant]
     Indication: LUNG DISORDER
     Route: 055
  10. MULTI VITAMIN [Concomitant]
     Route: 048
  11. CETRIZINE HC [Concomitant]
     Indication: HYPERSENSITIVITY
     Route: 048
  12. XANAX [Concomitant]
     Indication: NERVOUSNESS
     Dosage: 1 mg
     Route: 048
  13. ALLERGY SHOTS [Concomitant]
  14. OMEPRAZOLE [Concomitant]
     Indication: GASTROOESOPHAGEAL REFLUX DISEASE
     Dosage: 80 mg
     Route: 048
  15. ESTRADIOL [Concomitant]
     Indication: BLOOD OESTROGEN DECREASED
     Dosage: 0.5 mg
     Route: 048
  16. PROAIR [Concomitant]
     Indication: RESPIRATORY DISORDER
     Route: 055
  17. SOTALOL [Concomitant]
     Indication: ATRIAL FIBRILLATION
     Dosage: 240 mg
     Route: 048

REACTIONS (2)
  - Atrial fibrillation [Recovered/Resolved]
  - Loss of consciousness [Recovered/Resolved]
